FAERS Safety Report 8396421-5 (Version None)
Quarter: 2012Q2

REPORT INFORMATION
  Report Type: 
  Country: None (occurrence: None)
  Receive Date: 20120530
  Receipt Date: 20120516
  Transmission Date: 20120825
  Serious: Yes (Life-Threatening, Hospitalization, Other)
  Sender: FDA-Public Use
  Company Number: JP-ROCHE-1070945

PATIENT
  Sex: Male
  Weight: 54 kg

DRUGS (13)
  1. FLUOROURACIL [Concomitant]
     Dosage: FOLFOX THERAPY
     Route: 041
     Dates: start: 20120403, end: 20120401
  2. TOPOTECAN [Concomitant]
     Dosage: FOLFIRI THERAPY
     Route: 041
     Dates: start: 20111101, end: 20111213
  3. FLUOROURACIL [Concomitant]
     Dosage: FOLFIRI THERAPY
     Route: 041
     Dates: start: 20110920, end: 20111201
  4. LEVOLEUCOVORIN CALCIUM [Concomitant]
     Indication: COLON CANCER RECURRENT
     Dosage: DOSAGE IS UNCERTAIN. FOLFIRI THERAPY
     Route: 041
     Dates: start: 20110920, end: 20111213
  5. OXALIPLATIN [Concomitant]
     Indication: COLON CANCER RECURRENT
     Dosage: FOLFOX THERAPY
     Route: 041
     Dates: start: 20111227, end: 20120403
  6. TOPOTECAN [Concomitant]
     Indication: COLON CANCER RECURRENT
     Dosage: FOLFIRI THERAPY
     Route: 041
     Dates: start: 20110920, end: 20111018
  7. AVASTIN [Suspect]
     Indication: COLON CANCER RECURRENT
     Route: 041
     Dates: start: 20111213, end: 20111213
  8. AVASTIN [Suspect]
     Route: 041
     Dates: start: 20111227, end: 20120403
  9. FLUOROURACIL [Concomitant]
     Dosage: FOLFOX THERAPY
     Route: 040
     Dates: start: 20111227, end: 20120313
  10. FLUOROURACIL [Concomitant]
     Dosage: FOLFOX THERAPY
     Route: 041
     Dates: start: 20111227, end: 20120301
  11. FLUOROURACIL [Concomitant]
     Indication: COLON CANCER RECURRENT
     Dosage: FOLFIRI THERAPY
     Route: 040
     Dates: start: 20110920, end: 20111213
  12. LEVOLEUCOVORIN CALCIUM [Concomitant]
     Dosage: DOSAGE IS UNCERTAIN. FOLFOX THERAPY
     Route: 041
     Dates: start: 20111227
  13. FLUOROURACIL [Concomitant]
     Dosage: FOLFOX THERAPY
     Route: 040
     Dates: start: 20120403, end: 20120403

REACTIONS (5)
  - GASTROINTESTINAL PERFORATION [None]
  - INFECTIOUS PERITONITIS [None]
  - PYREXIA [None]
  - GASTROINTESTINAL HAEMORRHAGE [None]
  - ANAEMIA [None]
